FAERS Safety Report 10170654 (Version 2)
Quarter: 2014Q2

REPORT INFORMATION
  Report Type: Spontaneous
  Country: FR (occurrence: FR)
  Receive Date: 20140514
  Receipt Date: 20140617
  Transmission Date: 20141212
  Serious: Yes (Hospitalization, Other)
  Sender: FDA-Public Use
  Company Number: FR-ROCHE-1400619

PATIENT
  Age: 80 Year
  Sex: Female
  Weight: 69 kg

DRUGS (6)
  1. ZELBORAF [Suspect]
     Indication: MALIGNANT MELANOMA
     Route: 048
     Dates: start: 20140429, end: 20140515
  2. COTAREG [Concomitant]
     Route: 065
  3. PRAVASTATINE [Concomitant]
     Route: 048
  4. COUMADINE [Concomitant]
     Route: 048
  5. FLECAINE [Concomitant]
     Route: 048
  6. ATENOLOL [Concomitant]
     Route: 065

REACTIONS (6)
  - Skin reaction [Recovered/Resolved]
  - Fatigue [Recovered/Resolved]
  - Weight decreased [Recovered/Resolved]
  - Decreased appetite [Recovered/Resolved]
  - International normalised ratio abnormal [Recovered/Resolved]
  - Bradycardia [Recovered/Resolved]
